FAERS Safety Report 7587057-4 (Version None)
Quarter: 2011Q3

REPORT INFORMATION
  Report Type: 
  Country: None (occurrence: None)
  Receive Date: 20110701
  Receipt Date: 20110620
  Transmission Date: 20111222
  Serious: Yes (Hospitalization, Other)
  Sender: FDA-Public Use
  Company Number: PHHY2008CA22232

PATIENT
  Sex: Female

DRUGS (5)
  1. CLOZAPINE [Suspect]
     Indication: SCHIZOAFFECTIVE DISORDER
     Dosage: 350 MG,
     Route: 048
     Dates: start: 20020410
  2. LITHIUM CARBONATE [Concomitant]
     Dosage: 600 MG, QHS
     Route: 048
  3. PAXIL [Interacting]
     Dosage: 10 MG, QD
     Route: 048
     Dates: end: 20080529
  4. LITHIUM CARBONATE [Concomitant]
     Dosage: 300 MG, QAM
     Route: 048
  5. PAXIL [Interacting]
     Dosage: 10 MG, QAM
     Route: 048
     Dates: start: 20080910

REACTIONS (4)
  - CONFUSIONAL STATE [None]
  - DRUG LEVEL INCREASED [None]
  - DRUG INTERACTION [None]
  - LIVER DISORDER [None]
